FAERS Safety Report 4511859-1 (Version None)
Quarter: 2004Q4

REPORT INFORMATION
  Report Type: 
  Country: None (occurrence: None)
  Receive Date: 20041123
  Receipt Date: 20041109
  Transmission Date: 20050328
  Serious: Yes (Death)
  Sender: FDA-Public Use
  Company Number: MK200410-0186-2

PATIENT
  Age: 55 Year
  Sex: Male

DRUGS (1)
  1. CONRAY [Suspect]
     Dosage: IT
     Route: 038
     Dates: start: 20041014, end: 20041014

REACTIONS (3)
  - FRACTURE [None]
  - MUSCLE CONTRACTIONS INVOLUNTARY [None]
  - PULMONARY EMBOLISM [None]
